FAERS Safety Report 4299719-5 (Version None)
Quarter: 2004Q1

REPORT INFORMATION
  Report Type: 
  Country: None (occurrence: None)
  Receive Date: 20040126
  Receipt Date: 20031111
  Transmission Date: 20041129
  Serious: No
  Sender: FDA-Public Use
  Company Number: USA031152294

PATIENT
  Age: 6 Year
  Sex: Male
  Weight: 28 kg

DRUGS (1)
  1. STRATTERA [Suspect]
     Indication: ATTENTION DEFICIT/HYPERACTIVITY DISORDER
     Dosage: 25 MG/1 DAY

REACTIONS (5)
  - ABNORMAL BEHAVIOUR [None]
  - DYSPHEMIA [None]
  - INSOMNIA [None]
  - MANIA [None]
  - PSYCHOMOTOR HYPERACTIVITY [None]
